FAERS Safety Report 8044013-X (Version None)
Quarter: 2011Q4

REPORT INFORMATION
  Report Type: 
  Country: None (occurrence: None)
  Receive Date: 20111209
  Receipt Date: 20110929
  Transmission Date: 20120403
  Serious: No
  Sender: FDA-Public Use
  Company Number: 2011SP046253

PATIENT
  Age: 54 Year
  Sex: Male
  Weight: 74.8435 kg

DRUGS (6)
  1. PEGASYS [Suspect]
     Indication: PRODUCT USED FOR UNKNOWN INDICATION
     Dosage: 180 MCG, QW, SC
     Route: 058
  2. BENADRYL [Concomitant]
  3. RIBAVIRIN [Suspect]
     Indication: PRODUCT USED FOR UNKNOWN INDICATION
  4. MOTRIN [Concomitant]
  5. VICTRELIS [Suspect]
     Indication: HEPATITIS C
     Dosage: 200 MG, TID, PO
     Route: 048
     Dates: start: 20110914
  6. OXYCODONE HCL [Concomitant]

REACTIONS (10)
  - RASH PRURITIC [None]
  - DIARRHOEA [None]
  - PRURITUS [None]
  - CHEST DISCOMFORT [None]
  - MUSCULAR WEAKNESS [None]
  - FATIGUE [None]
  - DYSPNOEA [None]
  - DEPRESSION [None]
  - NAUSEA [None]
  - DIZZINESS [None]
